FAERS Safety Report 5430248-9 (Version None)
Quarter: 2007Q3

REPORT INFORMATION
  Report Type: 
  Country: None (occurrence: None)
  Receive Date: 20070731
  Receipt Date: 20070417
  Transmission Date: 20080115
  Serious: No
  Sender: FDA-Public Use
  Company Number: US200704003896

PATIENT
  Age: 50 Year
  Sex: Female

DRUGS (2)
  1. BYETTA [Suspect]
     Indication: TYPE 2 DIABETES MELLITUS
     Dosage: 5 UG, 2/D, SUBCUTAENOUS
     Route: 058
     Dates: start: 20060601, end: 20070327
  2. METFORMIN HCL [Concomitant]

REACTIONS (9)
  - ASTHENIA [None]
  - BLOOD GLUCOSE INCREASED [None]
  - COLD SWEAT [None]
  - CONFUSIONAL STATE [None]
  - CRYING [None]
  - FATIGUE [None]
  - HUNGER [None]
  - HYPOGLYCAEMIA [None]
  - IRRITABILITY [None]
